FAERS Safety Report 5713191-7 (Version None)
Quarter: 2008Q2

REPORT INFORMATION
  Report Type: 
  Country: None (occurrence: None)
  Receive Date: 20080422
  Receipt Date: 20080417
  Transmission Date: 20081010
  Serious: Yes (Hospitalization)
  Sender: FDA-Public Use
  Company Number: PHNU2008DE01583

PATIENT
  Sex: Male

DRUGS (10)
  1. ESIDRIX [Suspect]
     Dosage: 25 MG/D
     Dates: start: 20060120
  2. DELIX [Suspect]
     Dosage: 5 MG/D
     Dates: start: 20060120
  3. BELOC-ZOK [Suspect]
     Dosage: 190 MG/D
     Dates: start: 20060120, end: 20060206
  4. BELOC-ZOK [Suspect]
     Dosage: 95 MG/D
     Dates: start: 20060207
  5. TOREM [Suspect]
     Dosage: 20 MG/D
     Dates: start: 20060120
  6. CIPRAMIL /NET/ [Suspect]
     Dosage: 20 MG/D
     Dates: start: 20060128
  7. REMERGIL [Suspect]
     Dosage: 15 MG/D
     Dates: start: 20060127
  8. SORTIS [Concomitant]
     Dosage: 20 MG/D
     Dates: start: 20060120
  9. MARCUMAR [Concomitant]
     Dates: start: 20060120
  10. DIGIMERCK [Concomitant]
     Dosage: 0.07 MG/D
     Dates: start: 20060120

REACTIONS (4)
  - BRADYCARDIA [None]
  - DIZZINESS [None]
  - DRUG INTERACTION [None]
  - HYPOTENSION [None]
